FAERS Safety Report 21498893 (Version 1)
Quarter: 2022Q4

REPORT INFORMATION
  Report Type: Spontaneous
  Country: US (occurrence: None)
  Receive Date: 20221021
  Receipt Date: 20221021
  Transmission Date: 20230112
  Serious: Yes (unspecified)
  Sender: FDA-Public Use
  Company Number: None

PATIENT
  Age: 39 Year
  Sex: Female
  Weight: 61.23 kg

DRUGS (2)
  1. KYLEENA [Suspect]
     Active Substance: LEVONORGESTREL
  2. ADDERALL [Concomitant]
     Active Substance: AMPHETAMINE ASPARTATE\AMPHETAMINE SULFATE\DEXTROAMPHETAMINE SACCHARATE\DEXTROAMPHETAMINE SULFATE

REACTIONS (20)
  - Feeling abnormal [None]
  - Complication associated with device [None]
  - Depression [None]
  - Defaecation urgency [None]
  - Vulvovaginal swelling [None]
  - Vaginal relaxation [None]
  - Dyspareunia [None]
  - Vulvovaginal pain [None]
  - Vaginal discharge [None]
  - Vaginal abscess [None]
  - Female genital tract fistula [None]
  - Skin odour abnormal [None]
  - Suicidal ideation [None]
  - Abdominal distension [None]
  - Headache [None]
  - Disturbance in attention [None]
  - Partner stress [None]
  - Personality change [None]
  - Feeling abnormal [None]
  - Deformity [None]

NARRATIVE: CASE EVENT DATE: 20221020
